FAERS Safety Report 9424870 (Version 1)
Quarter: 2013Q3

REPORT INFORMATION
  Report Type: Spontaneous
  Country: US (occurrence: US)
  Receive Date: 20130729
  Receipt Date: 20130729
  Transmission Date: 20140515
  Serious: No
  Sender: FDA-Public Use
  Company Number: US-PFIZER INC-2013216484

PATIENT
  Age: 46 Year
  Sex: Female
  Weight: 59.41 kg

DRUGS (2)
  1. DIFLUCAN [Suspect]
     Indication: FUNGAL INFECTION
     Dosage: 150 MG, 1X/DAY
     Route: 048
     Dates: start: 1998
  2. DIFLUCAN [Suspect]
     Dosage: 50 MG, 1X/DAY
     Route: 048
     Dates: end: 2013

REACTIONS (4)
  - Drug hypersensitivity [Recovered/Resolved]
  - Pruritus [Recovered/Resolved]
  - Burning sensation [Recovered/Resolved]
  - Skin disorder [Unknown]
